FAERS Safety Report 8831954 (Version 5)
Quarter: 2014Q2

REPORT INFORMATION
  Report Type: Spontaneous
  Country: US (occurrence: US)
  Receive Date: 20121009
  Receipt Date: 20140418
  Transmission Date: 20141212
  Serious: Yes (Hospitalization, Other)
  Sender: FDA-Public Use
  Company Number: US-009507513-1210USA000769

PATIENT
  Sex: Female

DRUGS (16)
  1. FOSAMAX [Suspect]
     Indication: OSTEOPOROSIS
     Dosage: 70 MG, UNK
     Route: 048
     Dates: start: 20010629, end: 20040214
  2. FOSAMAX [Suspect]
     Dosage: 70 MG, QD
     Route: 048
     Dates: start: 2011
  3. FOSAMAX PLUS D [Suspect]
     Indication: OSTEOPOROSIS
     Dosage: 70 MG/2,800 IU
     Route: 048
     Dates: start: 20090717, end: 20100524
  4. FOSAMAX [Suspect]
     Indication: OSTEOPOROSIS
     Dosage: 70 MG, UNK
     Route: 048
     Dates: start: 20100528, end: 20100822
  5. ALENDRONATE SODIUM [Suspect]
     Dosage: 70 MG, QW
     Route: 048
     Dates: start: 20100528, end: 201202
  6. ACTONEL [Concomitant]
     Indication: OSTEOPOROSIS
     Dosage: 5 MG, UNK
     Route: 048
     Dates: start: 20000615, end: 20010207
  7. CENTRUM (MINERALS (UNSPECIFIED) (+) VITAMINS (UNSPECIFIED)) [Concomitant]
     Dosage: UNK
     Dates: start: 2000, end: 2011
  8. CALCIUM (UNSPECIFIED) [Concomitant]
     Indication: OSTEOPOROSIS
     Dosage: UNK
     Dates: start: 2000, end: 2011
  9. VITAMIN D (UNSPECIFIED) [Concomitant]
     Indication: OSTEOPOROSIS
     Dosage: 400-600 IU/ DAY
     Dates: start: 2000, end: 2011
  10. FOLBIC [Concomitant]
     Dosage: UNK, QD
     Route: 048
     Dates: start: 2000, end: 2011
  11. MIACALCIN [Concomitant]
     Indication: OSTEOPOROSIS
  12. ATENOLOL [Concomitant]
     Indication: HYPERTENSION
     Dosage: UNK
     Route: 048
     Dates: start: 20030108, end: 20070405
  13. ARICEPT [Concomitant]
     Indication: DEMENTIA
     Dosage: 10 MG, QD
     Route: 048
     Dates: start: 20030618, end: 20101209
  14. NAMENDA [Concomitant]
     Indication: DEMENTIA ALZHEIMER^S TYPE
     Dosage: 10 MG, BID
     Route: 048
     Dates: start: 20080707, end: 20110130
  15. SEROQUEL [Concomitant]
     Indication: DEPRESSION
     Dosage: 150 MG, QD
     Dates: start: 20091206, end: 2011
  16. MIRTAZAPINE [Concomitant]
     Indication: DEPRESSION
     Dosage: 15 MG, QD
     Dates: start: 2010, end: 2010

REACTIONS (35)
  - Femoral neck fracture [Unknown]
  - Open reduction of fracture [Unknown]
  - Hypotension [Unknown]
  - Lethargy [Unknown]
  - Fall [Unknown]
  - Gastrostomy [Unknown]
  - Transfusion [Unknown]
  - Hypophagia [Unknown]
  - Pulmonary congestion [Unknown]
  - Mental status changes [Unknown]
  - Dehydration [Unknown]
  - Chronic obstructive pulmonary disease [Unknown]
  - Lobar pneumonia [Unknown]
  - Iron deficiency anaemia [Unknown]
  - Transfusion [Unknown]
  - Blood potassium abnormal [Unknown]
  - Ruptured cerebral aneurysm [Unknown]
  - Dyspnoea [Unknown]
  - Diverticulitis [Unknown]
  - Emphysema [Unknown]
  - Fall [Unknown]
  - Inappropriate schedule of drug administration [Unknown]
  - Vertebral foraminal stenosis [Unknown]
  - Intervertebral disc protrusion [Unknown]
  - Urinary tract infection [Unknown]
  - Hypotension [Unknown]
  - Arrhythmia [Unknown]
  - Craniocerebral injury [Unknown]
  - Agitation [Unknown]
  - Hiatus hernia [Unknown]
  - Inappropriate schedule of drug administration [Unknown]
  - Hysterectomy [Unknown]
  - Hernia [Unknown]
  - Abdominal pain [Unknown]
  - Abdominal distension [Unknown]
